FAERS Safety Report 10269649 (Version 2)
Quarter: 2014Q3

REPORT INFORMATION
  Report Type: Spontaneous
  Country: FR (occurrence: FR)
  Receive Date: 20140701
  Receipt Date: 20140909
  Transmission Date: 20150326
  Serious: Yes (Hospitalization)
  Sender: FDA-Public Use
  Company Number: FR-ROCHE-1427074

PATIENT
  Age: 87 Year
  Sex: Male

DRUGS (15)
  1. INEXIUM [Concomitant]
     Active Substance: ESOMEPRAZOLE
     Route: 065
  2. CONTALAX [Concomitant]
     Route: 065
  3. TOPALGIC (FRANCE) [Concomitant]
     Active Substance: TRAMADOL
     Dosage: 100 MG/ML 10 DROPS
     Route: 065
  4. AMLOR [Concomitant]
     Active Substance: AMLODIPINE BESYLATE
     Route: 065
  5. SODIUM CHLORIDE. [Concomitant]
     Active Substance: SODIUM CHLORIDE
     Dosage: 2 CAPSULES
     Route: 065
  6. TENORMIN [Concomitant]
     Active Substance: ATENOLOL
     Route: 065
  7. TRIATEC (FRANCE) [Concomitant]
     Active Substance: RAMIPRIL
     Route: 065
  8. DOLIPRANE [Concomitant]
     Active Substance: ACETAMINOPHEN
     Route: 065
  9. ROCEPHINE [Suspect]
     Active Substance: CEFTRIAXONE SODIUM
     Indication: CULTURE URINE POSITIVE
     Route: 042
     Dates: start: 20140514, end: 20140519
  10. KARDEGIC [Concomitant]
     Active Substance: ASPIRIN LYSINE
     Route: 065
  11. IMOVANE [Concomitant]
     Active Substance: ZOPICLONE
     Dosage: 0.5 TABLET
     Route: 065
  12. UVEDOSE [Concomitant]
     Active Substance: CHOLECALCIFEROL
     Dosage: 1 AMPOULA
     Route: 065
  13. LOVENOX [Concomitant]
     Active Substance: ENOXAPARIN SODIUM
     Route: 058
     Dates: start: 20140513
  14. AUGMENTIN [Suspect]
     Active Substance: AMOXICILLIN\CLAVULANATE POTASSIUM
     Indication: LUNG DISORDER
     Route: 042
     Dates: start: 20140513, end: 20140514
  15. SIMVASTATINE [Concomitant]
     Active Substance: SIMVASTATIN
     Route: 065

REACTIONS (1)
  - Aplasia pure red cell [Recovered/Resolved]

NARRATIVE: CASE EVENT DATE: 20140516
